FAERS Safety Report 15120029 (Version 1)
Quarter: 2018Q3

REPORT INFORMATION
  Report Type: Spontaneous
  Country: BR (occurrence: BR)
  Receive Date: 20180709
  Receipt Date: 20180709
  Transmission Date: 20181010
  Serious: Yes (Congenital Anomaly)
  Sender: FDA-Public Use
  Company Number: PHHY2018BR038971

PATIENT
  Sex: Male
  Weight: 2.85 kg

DRUGS (1)
  1. OCTREOTIDE, LONG ACTING [Suspect]
     Active Substance: OCTREOTIDE ACETATE
     Indication: FOETAL EXPOSURE DURING PREGNANCY
     Dosage: MATERNAL DOSE: 30 MG
     Route: 064

REACTIONS (2)
  - Foetal exposure during pregnancy [Unknown]
  - Ureteric stenosis [Unknown]
